FAERS Safety Report 10216950 (Version 1)
Quarter: 2014Q2

REPORT INFORMATION
  Report Type: Spontaneous
  Country: CO (occurrence: CO)
  Receive Date: 20140604
  Receipt Date: 20140604
  Transmission Date: 20141212
  Serious: Yes (Other)
  Sender: FDA-Public Use
  Company Number: CO-GLAXOSMITHKLINE-A1075536A

PATIENT
  Sex: Female
  Weight: 15 kg

DRUGS (2)
  1. SERETIDE [Suspect]
     Indication: ASTHMA
     Route: 048
     Dates: start: 201304, end: 20140412
  2. ALLEGRA [Concomitant]

REACTIONS (1)
  - Adrenal insufficiency [Not Recovered/Not Resolved]
